FAERS Safety Report 19087331 (Version 2)
Quarter: 2021Q2

REPORT INFORMATION
  Report Type: Report from Study
  Country: AR (occurrence: AR)
  Receive Date: 20210402
  Receipt Date: 20210417
  Transmission Date: 20210717
  Serious: Yes (Hospitalization)
  Sender: FDA-Public Use
  Company Number: NVSC2021AR070795

PATIENT
  Age: 88 Year
  Sex: Female

DRUGS (3)
  1. DIOVAN [Suspect]
     Active Substance: VALSARTAN
     Indication: HYPERTENSION
     Dosage: 2 DF, QD (04 YEAR AGO APP)
     Route: 065
     Dates: end: 202012
  2. DIOVAN [Suspect]
     Active Substance: VALSARTAN
     Dosage: 2 DF, QD (1 TABLET IN THE MORNING AND 1 TABLET IN THE AFTERNOON IN LAST WEEK)
     Route: 065
  3. DAFLON [Concomitant]
     Indication: PRODUCT USED FOR UNKNOWN INDICATION
     Dosage: 1000 MG, QD
     Route: 065

REACTIONS (2)
  - Blood pressure fluctuation [Unknown]
  - Cellulitis [Recovering/Resolving]

NARRATIVE: CASE EVENT DATE: 202012
